FAERS Safety Report 8967766 (Version 1)
Quarter: 2012Q4

REPORT INFORMATION
  Report Type: Spontaneous
  Country: CN (occurrence: None)
  Receive Date: 20121210
  Receipt Date: 20121210
  Transmission Date: 20130627
  Serious: Yes (Hospitalization, Other)
  Sender: FDA-Public Use
  Company Number: VAL_01167_2012

PATIENT
  Age: 73 Year
  Sex: Female
  Weight: 75 kg

DRUGS (2)
  1. LOTENSIN [Suspect]
     Indication: HYPERTENSION
     Route: 048
     Dates: start: 20091022, end: 20091027
  2. LOTENSIN [Suspect]
     Indication: HYPERTENSION
     Route: 048
     Dates: start: 20091028, end: 20091105

REACTIONS (8)
  - Nocturia [None]
  - Dizziness [None]
  - Headache [None]
  - Urine analysis abnormal [None]
  - Chest discomfort [None]
  - Blood pressure increased [None]
  - Condition aggravated [None]
  - Renal failure acute [None]
